FAERS Safety Report 4321999-8 (Version None)
Quarter: 2004Q1

REPORT INFORMATION
  Report Type: 
  Country: None (occurrence: None)
  Receive Date: 20040319
  Receipt Date: 20040217
  Transmission Date: 20041129
  Serious: No
  Sender: FDA-Public Use
  Company Number: 200401179

PATIENT
  Sex: Female

DRUGS (1)
  1. LUMIGAN [Suspect]
     Indication: GLAUCOMA
     Dosage: 2 DROP QPM EYE

REACTIONS (4)
  - HYPOAESTHESIA [None]
  - SINUS DISORDER [None]
  - SINUS PAIN [None]
  - SWELLING FACE [None]
